FAERS Safety Report 15518853 (Version 1)
Quarter: 2018Q4

REPORT INFORMATION
  Report Type: Other
  Country: US (occurrence: US)
  Receive Date: 20181017
  Receipt Date: 20181017
  Transmission Date: 20190205
  Serious: Yes (Other)
  Sender: FDA-Public Use
  Company Number: US-MEDICURE INC.-2056311

PATIENT

DRUGS (5)
  1. INTRAVENOUS ANTICOAGULANT (NOT SPECIFIED) [Concomitant]
  2. ORAL P2Y12 INHIBITOR (NOT SPECIFIED) [Concomitant]
     Route: 048
  3. ASPIRIN. [Concomitant]
     Active Substance: ASPIRIN
  4. AGGRASTAT [Suspect]
     Active Substance: TIROFIBAN HYDROCHLORIDE
     Indication: ANTIPLATELET THERAPY
     Route: 040
  5. AGGRASTAT [Suspect]
     Active Substance: TIROFIBAN HYDROCHLORIDE
     Route: 041

REACTIONS (1)
  - Coronary artery bypass [Unknown]
